FAERS Safety Report 4501074-X (Version None)
Quarter: 2004Q4

REPORT INFORMATION
  Report Type: 
  Country: None (occurrence: None)
  Receive Date: 20041109
  Receipt Date: 20041027
  Transmission Date: 20050328
  Serious: Yes (Hospitalization)
  Sender: FDA-Public Use
  Company Number: USA041082311

PATIENT

DRUGS (1)
  1. PROZAC [Suspect]

REACTIONS (5)
  - COMA NEONATAL [None]
  - DRUG EXPOSURE DURING PREGNANCY [None]
  - HYPOTONIA [None]
  - NEONATAL DISORDER [None]
  - PREMATURE BABY [None]
